FAERS Safety Report 13093966 (Version 1)
Quarter: 2017Q1

REPORT INFORMATION
  Report Type: Spontaneous
  Country: FR (occurrence: FR)
  Receive Date: 20170106
  Receipt Date: 20170106
  Transmission Date: 20170428
  Serious: Yes (Other)
  Sender: FDA-Public Use
  Company Number: FR-SYMPLMED PHARMACEUTICALS-2016SYMPLMED000391

PATIENT

DRUGS (1)
  1. COVERAM [Suspect]
     Active Substance: AMLODIPINE\PERINDOPRIL
     Indication: HYPERTENSION
     Dosage: 1 (10MG/10MG) TABLET, QD
     Route: 048
     Dates: start: 201611

REACTIONS (4)
  - Gastrooesophageal reflux disease [Recovered/Resolved]
  - Chest pain [Recovered/Resolved]
  - Muscle contracture [Recovered/Resolved]
  - Dyspnoea [Recovered/Resolved]

NARRATIVE: CASE EVENT DATE: 201612
